FAERS Safety Report 7316497-3 (Version None)
Quarter: 2011Q1

REPORT INFORMATION
  Report Type: 
  Country: None (occurrence: None)
  Receive Date: 20110226
  Receipt Date: 20100503
  Transmission Date: 20110831
  Serious: No
  Sender: FDA-Public Use
  Company Number: US-ALLERGAN-1005804US

PATIENT
  Age: 46 Year
  Sex: Female

DRUGS (1)
  1. BOTOX COSMETIC [Suspect]
     Indication: SKIN WRINKLING
     Dosage: 50-54 UNITS, SINGLE
     Route: 030
     Dates: start: 20100121, end: 20100121

REACTIONS (10)
  - ABNORMAL SENSATION IN EYE [None]
  - DRUG INEFFECTIVE [None]
  - HYPOAESTHESIA ORAL [None]
  - SKIN TIGHTNESS [None]
  - PERIORBITAL OEDEMA [None]
  - PARAESTHESIA [None]
  - FACIAL PAIN [None]
  - SWELLING FACE [None]
  - EYELID OEDEMA [None]
  - FACIAL PARESIS [None]
